FAERS Safety Report 9522734 (Version 1)
Quarter: 2013Q1

REPORT INFORMATION
  Report Type: Spontaneous
  Country: US (occurrence: None)
  Receive Date: 20130305
  Receipt Date: 20130305
  Transmission Date: 20140127
  Serious: Yes (Other)
  Sender: FDA-Public Use
  Company Number: 163-21880-11092672

PATIENT
  Age: 41 Year
  Sex: Male
  Weight: 120.66 kg

DRUGS (3)
  1. REVLIMID (LENALIDOMIDE) (25 MILLIGRAM, CAPSULES) [Suspect]
     Indication: PLASMA CELL MYELOMA
     Dosage: 25 MG, DAILY X 21D / 28D, PO
     Route: 048
     Dates: start: 20110615
  2. DEXAMETHASONE [Concomitant]
  3. ZOMETA (ZOLEDRONIC ACID) [Concomitant]

REACTIONS (5)
  - Renal failure [None]
  - Thrombocytopenia [None]
  - Decreased immune responsiveness [None]
  - Fatigue [None]
  - Neutropenia [None]
